FAERS Safety Report 5614131-1 (Version None)
Quarter: 2008Q1

REPORT INFORMATION
  Report Type: 
  Country: None (occurrence: None)
  Receive Date: 20080205
  Receipt Date: 20080129
  Transmission Date: 20080703
  Serious: Yes (Life-Threatening, Hospitalization, Disabling)
  Sender: FDA-Public Use
  Company Number: CA-GENENTECH-229811

PATIENT
  Sex: Female
  Weight: 55.1 kg

DRUGS (10)
  1. RITUXIMAB [Suspect]
     Indication: MULTIPLE SCLEROSIS
     Dosage: 2 G, DAYS 1+15
     Route: 042
     Dates: start: 20050818
  2. BACLOFEN [Concomitant]
     Indication: MULTIPLE SCLEROSIS
  3. OXYCONTIN [Concomitant]
     Indication: MULTIPLE SCLEROSIS
  4. MELOXICAM [Concomitant]
     Indication: MULTIPLE SCLEROSIS
  5. PAXIL [Concomitant]
     Indication: MULTIPLE SCLEROSIS
  6. AMITRIPTYLINE HCL [Concomitant]
     Indication: MULTIPLE SCLEROSIS
  7. FENTANYL [Concomitant]
     Indication: MULTIPLE SCLEROSIS
  8. FLOVENT [Concomitant]
     Indication: CHRONIC OBSTRUCTIVE PULMONARY DISEASE
     Dates: start: 20051218
  9. VENTOLIN [Concomitant]
     Indication: CHRONIC OBSTRUCTIVE PULMONARY DISEASE
     Dates: start: 20051218
  10. ATROVENT [Concomitant]
     Indication: CHRONIC OBSTRUCTIVE PULMONARY DISEASE
     Dates: start: 20051218

REACTIONS (1)
  - RESPIRATORY FAILURE [None]
